FAERS Safety Report 8005042-5 (Version None)
Quarter: 2011Q4

REPORT INFORMATION
  Report Type: 
  Country: None (occurrence: None)
  Receive Date: 20111223
  Receipt Date: 20111212
  Transmission Date: 20120403
  Serious: Yes (Other)
  Sender: FDA-Public Use
  Company Number: ES-CELGENEUS-144-50794-11121475

PATIENT
  Age: 54 Year
  Sex: Male

DRUGS (2)
  1. ANTIBIOTICS [Concomitant]
     Indication: ANTIBIOTIC THERAPY
     Route: 065
     Dates: start: 20111001, end: 20111001
  2. VIDAZA [Suspect]
     Indication: MYELODYSPLASTIC SYNDROME
     Dosage: 25 MILLIGRAM
     Route: 058
     Dates: start: 20110807, end: 20111024

REACTIONS (4)
  - NEUTROPENIA [None]
  - DIZZINESS [None]
  - TOXICITY TO VARIOUS AGENTS [None]
  - NAUSEA [None]
